FAERS Safety Report 9395353 (Version 1)
Quarter: 2013Q3

REPORT INFORMATION
  Report Type: Spontaneous
  Country: US (occurrence: US)
  Receive Date: 20130711
  Receipt Date: 20130711
  Transmission Date: 20140515
  Serious: No
  Sender: FDA-Public Use
  Company Number: US-ASTELLAS-2013US005120

PATIENT
  Sex: Male

DRUGS (1)
  1. MYRBETRIQ [Suspect]
     Indication: INCONTINENCE
     Dosage: 25 MG, UNKNOWN/D
     Route: 048
     Dates: start: 20130404, end: 201304

REACTIONS (2)
  - Off label use [Unknown]
  - Abnormal dreams [Not Recovered/Not Resolved]
